FAERS Safety Report 8503193-X (Version None)
Quarter: 2012Q3

REPORT INFORMATION
  Report Type: 
  Country: None (occurrence: None)
  Receive Date: 20120711
  Receipt Date: 20120628
  Transmission Date: 20120928
  Serious: No
  Sender: FDA-Public Use
  Company Number: US-B.I. PHARMACEUTICALS,INC./RIDGEFIELD-2012-BP-14683BP

PATIENT
  Sex: Female

DRUGS (9)
  1. FELODIPINE [Concomitant]
     Indication: BLOOD PRESSURE
     Dosage: 2.5 MG
     Route: 048
  2. FLUTICASONE PROPIONATE [Concomitant]
     Indication: MUCOUS MEMBRANE DISORDER
     Route: 045
  3. CENTRUM [Concomitant]
     Indication: SUPPLEMENTATION THERAPY
     Route: 048
  4. HYDROCHLOROTHIAZIDE [Concomitant]
     Indication: BLOOD PRESSURE
     Dosage: 12.5 MG
     Route: 048
  5. WARFARIN SODIUM [Concomitant]
     Indication: THROMBOSIS
     Dosage: 5 MG
     Route: 048
     Dates: start: 20000101
  6. CITRACAL [Concomitant]
     Indication: OSTEOPOROSIS
     Route: 048
  7. WARFARIN SODIUM [Concomitant]
     Indication: DEEP VEIN THROMBOSIS
  8. SPIRIVA [Suspect]
     Indication: ASTHMA
     Dosage: 18 MCG
     Route: 055
  9. ATORVASTATIN [Concomitant]
     Indication: BLOOD CHOLESTEROL
     Dosage: 40 MG
     Route: 048

REACTIONS (4)
  - INCORRECT ROUTE OF DRUG ADMINISTRATION [None]
  - COUGH [None]
  - CANDIDIASIS [None]
  - GASTROOESOPHAGEAL REFLUX DISEASE [None]
